FAERS Safety Report 20820817 (Version 1)
Quarter: 2022Q2

REPORT INFORMATION
  Report Type: Spontaneous
  Country: US (occurrence: None)
  Receive Date: 20220512
  Receipt Date: 20220512
  Transmission Date: 20220721
  Serious: No
  Sender: FDA-Public Use
  Company Number: None

PATIENT
  Age: 48 Year
  Sex: Female
  Weight: 90 kg

DRUGS (4)
  1. PAXLOVID [Suspect]
     Active Substance: NIRMATRELVIR\RITONAVIR
     Indication: SARS-CoV-2 test positive
     Dosage: FREQUENCY : EVERY 12 HOURS;?
     Dates: start: 20220428, end: 20220502
  2. IBUPROFEN [Concomitant]
     Active Substance: IBUPROFEN
  3. ACETAMINOPHEN [Concomitant]
     Active Substance: ACETAMINOPHEN
  4. MUCINEX [Concomitant]
     Active Substance: GUAIFENESIN

REACTIONS (9)
  - Disease recurrence [None]
  - COVID-19 [None]
  - Multiple allergies [None]
  - Respiratory tract infection [None]
  - Sneezing [None]
  - Rhinorrhoea [None]
  - Dysphonia [None]
  - Anosmia [None]
  - Hypogeusia [None]

NARRATIVE: CASE EVENT DATE: 20220507
